FAERS Safety Report 7166285-6 (Version None)
Quarter: 2010Q4

REPORT INFORMATION
  Report Type: 
  Country: None (occurrence: None)
  Receive Date: 20101216
  Receipt Date: 20101213
  Transmission Date: 20110411
  Serious: Yes (Hospitalization, Other)
  Sender: FDA-Public Use
  Company Number: US-AMGEN-USASP2010008970

PATIENT

DRUGS (3)
  1. NPLATE [Suspect]
     Indication: IDIOPATHIC THROMBOCYTOPENIC PURPURA
     Dosage: 0.5 A?G/KG, UNK
     Dates: start: 20090317
  2. CORTICOSTEROIDS [Concomitant]
  3. IMMUNOGLOBULINS [Concomitant]

REACTIONS (2)
  - BONE MARROW DISORDER [None]
  - HOSPITALISATION [None]
